FAERS Safety Report 10174587 (Version 1)
Quarter: 2014Q2

REPORT INFORMATION
  Report Type: Spontaneous
  Country: US (occurrence: None)
  Receive Date: 20140416
  Receipt Date: 20140416
  Transmission Date: 20141212
  Serious: Yes (Hospitalization)
  Sender: FDA-Public Use
  Company Number: 163-POMAL-13113230

PATIENT
  Age: 65 Year
  Sex: Female

DRUGS (4)
  1. POMALYST [Suspect]
     Indication: PLASMA CELL MYELOMA
     Dosage: 21 IN 21 D
     Route: 048
     Dates: start: 20130924, end: 2013
  2. METOPROLOL TARTRATE (METOPROLOL TARTRATE) [Concomitant]
  3. PREDNISONE (PREDNISONE) [Concomitant]
  4. LIPITOR (ATORVASTATIN) [Concomitant]

REACTIONS (1)
  - Cardiac failure [None]
